FAERS Safety Report 8087145-2 (Version None)
Quarter: 2012Q1

REPORT INFORMATION
  Report Type: 
  Country: None (occurrence: None)
  Receive Date: 20120128
  Receipt Date: 20110511
  Transmission Date: 20120608
  Serious: Yes (Other)
  Sender: FDA-Public Use
  Company Number: US-ABBOTT-11P-163-0725598-00

PATIENT
  Age: 76 Year
  Sex: Male

DRUGS (15)
  1. CELEBREX [Concomitant]
     Indication: PRODUCT USED FOR UNKNOWN INDICATION
  2. GABAPENTIN [Concomitant]
     Indication: NEUROPATHY PERIPHERAL
  3. SUPER B COMPLEX [Concomitant]
     Indication: VITAMIN SUPPLEMENTATION
  4. HUMIRA [Suspect]
     Indication: ANKYLOSING SPONDYLITIS
  5. NEXIUM [Concomitant]
     Indication: GASTROOESOPHAGEAL REFLUX DISEASE
  6. CALCIUM + D [Concomitant]
     Indication: PRODUCT USED FOR UNKNOWN INDICATION
  7. LISINOPRIL [Concomitant]
     Indication: HYPERTENSION
  8. HUMIRA [Suspect]
  9. ALLEGRA [Concomitant]
     Indication: HYPERSENSITIVITY
  10. DIAZEPAM [Concomitant]
     Indication: MUSCLE SPASMS
     Dosage: DAILY AT BEDTIME
  11. AMBIEN [Concomitant]
     Indication: PRODUCT USED FOR UNKNOWN INDICATION
     Dosage: AT BEDTIME AS NEEDED
  12. TAMSULOSIN HCL [Concomitant]
     Indication: PROSTATIC DISORDER
     Dosage: AT BEDTIME
  13. NUCYNTA [Concomitant]
     Indication: PAIN
  14. MULTI-VITAMINS [Concomitant]
     Indication: VITAMIN SUPPLEMENTATION
  15. HUMIRA [Suspect]
     Indication: ANKYLOSING SPONDYLITIS
     Dates: end: 20100901

REACTIONS (4)
  - MYOCARDIAL INFARCTION [None]
  - ABDOMINAL PAIN [None]
  - DIVERTICULITIS [None]
  - TRANSURETHRAL PROSTATECTOMY [None]
